FAERS Safety Report 10085975 (Version 1)
Quarter: 2014Q2

REPORT INFORMATION
  Report Type: Spontaneous
  Country: JP (occurrence: None)
  Receive Date: 20140416
  Receipt Date: 20140416
  Transmission Date: 20141212
  Serious: Yes (Hospitalization)
  Sender: FDA-Public Use
  Company Number: FK201401302

PATIENT
  Age: 60 Year
  Sex: Female

DRUGS (2)
  1. PACLITAXEL [Suspect]
     Indication: BREAST CANCER METASTATIC
     Dosage: 3 IN 1 WK
  2. ZOLEDRONIC ACID [Concomitant]

REACTIONS (1)
  - VIIth nerve paralysis [None]
